FAERS Safety Report 23896050 (Version 1)
Quarter: 2024Q2

REPORT INFORMATION
  Report Type: Spontaneous
  Country: PL (occurrence: PL)
  Receive Date: 20240524
  Receipt Date: 20240524
  Transmission Date: 20240715
  Serious: Yes (Death)
  Sender: FDA-Public Use
  Company Number: PL-PFIZER INC-202400175317

PATIENT
  Sex: Female

DRUGS (1)
  1. TALZENNA [Suspect]
     Active Substance: TALAZOPARIB TOSYLATE
     Indication: Triple negative breast cancer
     Dosage: 0.75 MG, 1X/DAY
     Dates: start: 202308, end: 202312

REACTIONS (3)
  - Death [Fatal]
  - Full blood count abnormal [Unknown]
  - Neoplasm progression [Unknown]
